FAERS Safety Report 5542208-8 (Version None)
Quarter: 2007Q4

REPORT INFORMATION
  Report Type: 
  Country: None (occurrence: None)
  Receive Date: 20071129
  Receipt Date: 20070530
  Transmission Date: 20080405
  Serious: Yes (Hospitalization, Other)
  Sender: FDA-Public Use
  Company Number: US200704002762

PATIENT
  Age: 15 Year
  Sex: Female
  Weight: 122.4 kg

DRUGS (5)
  1. ZYPREXA [Suspect]
     Indication: DEPRESSION
     Dosage: 10 MG, 50 MG
     Dates: start: 19990801, end: 20030601
  2. RISPERDAL [Concomitant]
  3. GEODON [Concomitant]
  4. PAXIL [Concomitant]
  5. ABILIFY [Concomitant]

REACTIONS (7)
  - DIABETES MELLITUS [None]
  - DIABETIC COMA [None]
  - DIABETIC KETOACIDOSIS [None]
  - HYPERGLYCAEMIA [None]
  - METABOLIC DISORDER [None]
  - OVERDOSE [None]
  - PANCREATITIS [None]
